FAERS Safety Report 4323146-5 (Version None)
Quarter: 2004Q1

REPORT INFORMATION
  Report Type: 
  Country: None (occurrence: None)
  Receive Date: 20040322
  Receipt Date: 20040311
  Transmission Date: 20041129
  Serious: Yes (Death)
  Sender: FDA-Public Use
  Company Number: US-JNJFOC-20040302828

PATIENT
  Sex: Female

DRUGS (1)
  1. RISPERDAL [Suspect]
     Indication: DEPRESSION
     Dosage: 1 MG, 2 IN 1  DAY, ORAL
     Route: 048
     Dates: start: 20020701, end: 20040130

REACTIONS (1)
  - DEATH [None]
